FAERS Safety Report 10035342 (Version 2)
Quarter: 2014Q2

REPORT INFORMATION
  Report Type: Spontaneous
  Country: CA (occurrence: CA)
  Receive Date: 20140325
  Receipt Date: 20140502
  Transmission Date: 20141212
  Serious: Yes (Death, Hospitalization)
  Sender: FDA-Public Use
  Company Number: CA-GLAXOSMITHKLINE-A1066140A

PATIENT
  Age: 45 Year
  Sex: Male
  Weight: 93 kg

DRUGS (4)
  1. ARZERRA [Suspect]
     Indication: PRODUCT USED FOR UNKNOWN INDICATION
     Dosage: 700U UNKNOWN
     Route: 065
     Dates: start: 20130425
  2. FLUCONAZOLE [Concomitant]
  3. CEFTAZIDINE [Concomitant]
  4. MORPHINE [Concomitant]

REACTIONS (9)
  - Death [Fatal]
  - Disease progression [Unknown]
  - Dysphagia [Unknown]
  - Neck pain [Unknown]
  - Cerebellar infarction [Unknown]
  - Respiratory failure [Unknown]
  - Cerebral infarction [Unknown]
  - General physical health deterioration [Unknown]
  - Brain stem infarction [Unknown]
